FAERS Safety Report 9053296 (Version 1)
Quarter: 2013Q1

REPORT INFORMATION
  Report Type: Spontaneous
  Country: US (occurrence: US)
  Receive Date: 20130207
  Receipt Date: 20130207
  Transmission Date: 20140127
  Serious: Yes (Other)
  Sender: FDA-Public Use
  Company Number: US-B.I. PHARMACEUTICALS,INC./RIDGEFIELD-2013-BI-02955BP

PATIENT
  Sex: Male

DRUGS (1)
  1. MOBIC [Suspect]
     Dosage: 15 MG
     Route: 048
     Dates: start: 2010

REACTIONS (1)
  - Convulsion [Unknown]
